FAERS Safety Report 7086363-X (Version None)
Quarter: 2010Q4

REPORT INFORMATION
  Report Type: 
  Country: None (occurrence: None)
  Receive Date: 20101105
  Receipt Date: 20100916
  Transmission Date: 20110411
  Serious: No
  Sender: FDA-Public Use
  Company Number: US-BAYER-201021517BCC

PATIENT
  Age: 57 Year
  Sex: Female
  Weight: 127 kg

DRUGS (10)
  1. ALEVE (CAPLET) [Suspect]
     Indication: PRODUCT USED FOR UNKNOWN INDICATION
     Dosage: TOTAL DAILY DOSE: 660 MG  UNIT DOSE: 220 MG
     Route: 048
     Dates: start: 20100901, end: 20100904
  2. ALEVE (CAPLET) [Suspect]
     Dosage: TOTAL DAILY DOSE: 440 MG  UNIT DOSE: 220 MG
     Route: 048
     Dates: start: 20100905, end: 20100911
  3. ALEVE (CAPLET) [Suspect]
     Dosage: TOTAL DAILY DOSE: 220 MG  UNIT DOSE: 220 MG
     Route: 048
     Dates: start: 20100912, end: 20100914
  4. ALEVE (CAPLET) [Suspect]
     Dosage: TOTAL DAILY DOSE: 440 MG  UNIT DOSE: 220 MG
     Route: 048
     Dates: start: 20100916
  5. TOPROL-XL [Concomitant]
  6. AVALIDE [Concomitant]
     Dosage: 300/12.5
  7. BAYER 81 MG LOW DOSE [Concomitant]
  8. ACTOPLUS MET [Concomitant]
     Dosage: 15/500
  9. GLIPIZIDE [Concomitant]
     Dosage: TOTAL DAILY DOSE: 10 MG  UNIT DOSE: 5 MG
  10. GLUCOTROL [Concomitant]

REACTIONS (1)
  - NO ADVERSE EVENT [None]
